FAERS Safety Report 7428029-X (Version None)
Quarter: 2011Q2

REPORT INFORMATION
  Report Type: 
  Country: None (occurrence: None)
  Receive Date: 20110421
  Receipt Date: 20110412
  Transmission Date: 20111010
  Serious: Yes (Hospitalization)
  Sender: FDA-Public Use
  Company Number: US-BIOGENIDEC-2011BI001189

PATIENT
  Age: 40 Year
  Sex: Female

DRUGS (5)
  1. TYSABRI [Suspect]
     Route: 042
     Dates: start: 20100909, end: 20100909
  2. TYSABRI [Suspect]
     Route: 042
     Dates: start: 20100322, end: 20100419
  3. TYSABRI [Suspect]
     Indication: MULTIPLE SCLEROSIS
     Route: 042
     Dates: start: 20080623, end: 20090115
  4. TYSABRI [Suspect]
     Route: 042
  5. TYSABRI [Suspect]
     Route: 042
     Dates: start: 20090318, end: 20090723

REACTIONS (3)
  - DIZZINESS [None]
  - HEMICEPHALALGIA [None]
  - SURGERY [None]
